FAERS Safety Report 5866222-8 (Version None)
Quarter: 2008Q3

REPORT INFORMATION
  Report Type: 
  Country: None (occurrence: None)
  Receive Date: 20080829
  Receipt Date: 20080819
  Transmission Date: 20090109
  Serious: Yes (Other)
  Sender: FDA-Public Use
  Company Number: BR-PFIZER INC-2008070132

PATIENT
  Sex: Female
  Weight: 54 kg

DRUGS (1)
  1. DOSTINEX [Suspect]
     Indication: BLOOD PROLACTIN INCREASED
     Route: 048

REACTIONS (3)
  - DIZZINESS [None]
  - HEADACHE [None]
  - LABYRINTHITIS [None]
